FAERS Safety Report 14530706 (Version 1)
Quarter: 2018Q1

REPORT INFORMATION
  Report Type: Spontaneous
  Country: US (occurrence: US)
  Receive Date: 20180214
  Receipt Date: 20180214
  Transmission Date: 20180509
  Serious: Yes (Hospitalization, Other)
  Sender: FDA-Public Use
  Company Number: US-NOVOPROD-585690

PATIENT
  Age: 69 Year
  Sex: Female
  Weight: 72.56 kg

DRUGS (2)
  1. LANTUS [Concomitant]
     Active Substance: INSULIN GLARGINE
     Indication: TYPE 2 DIABETES MELLITUS
     Dosage: UNK
     Route: 058
  2. NOVOLOG [Suspect]
     Active Substance: INSULIN ASPART
     Indication: TYPE 2 DIABETES MELLITUS
     Dosage: SLIDING SCALE, 15 TO 30 UNITS WITH MEALS
     Route: 058
     Dates: start: 1998

REACTIONS (7)
  - Hyperglycaemic unconsciousness [Recovered/Resolved]
  - Diabetic hyperglycaemic coma [Recovering/Resolving]
  - Anxiety [Not Recovered/Not Resolved]
  - Hyperglycaemic unconsciousness [Recovered/Resolved]
  - Blood glucose increased [Recovering/Resolving]
  - Blood glucose increased [Recovered/Resolved]
  - Vomiting [Unknown]

NARRATIVE: CASE EVENT DATE: 20180101
